FAERS Safety Report 6107412-9 (Version None)
Quarter: 2009Q1

REPORT INFORMATION
  Report Type: 
  Country: None (occurrence: None)
  Receive Date: 20090227
  Receipt Date: 20081104
  Transmission Date: 20090719
  Serious: Yes (Other)
  Sender: FDA-Public Use
  Company Number: 180328USA

PATIENT
  Age: 71 Week
  Sex: Male

DRUGS (1)
  1. METFORMIN HYDROCHLORIDE [Suspect]
     Dosage: 500 MG ORAL
     Route: 048

REACTIONS (1)
  - RENAL FAILURE [None]
